FAERS Safety Report 5126155-1 (Version None)
Quarter: 2006Q3

REPORT INFORMATION
  Report Type: 
  Country: None (occurrence: None)
  Receive Date: 20060823
  Receipt Date: 20060403
  Transmission Date: 20061208
  Serious: Yes (Hospitalization, Other)
  Sender: FDA-Public Use
  Company Number: 2006041362

PATIENT
  Age: 74 Year
  Sex: Male
  Weight: 79.8331 kg

DRUGS (11)
  1. NORVASC [Suspect]
     Indication: HYPERTENSION
     Dosage: 10 MG (10 MG,DAILY, INTERVAL: EVERY DAY),ORAL
     Route: 048
  2. ARICEPT [Suspect]
     Indication: DEMENTIA
     Dosage: 10 MG (10 MG,DAILY, INTERVAL: EVERY DAY),ORAL
     Route: 048
  3. ZOCOR [Suspect]
     Indication: BLOOD CHOLESTEROL INCREASED
     Dosage: 40 MG (40 MG,DAILY, INTERVAL: EVERY DAY),ORAL
     Route: 048
  4. ASPIRIN [Suspect]
     Indication: ILL-DEFINED DISORDER
     Dosage: 81 MG (81 MG,DAILY, INTERVAL: EVERY DAY),ORAL
     Route: 048
  5. EFFEXOR XR [Suspect]
     Indication: DEPRESSION
     Dosage: 75 MG (75 MG,DAILY, INTERVAL: EVERY DAY),ORAL
     Route: 048
  6. LISINOPRIL [Suspect]
     Indication: HYPERTENSION
     Dosage: 20 MG (20 MG,DAILY, INTERVAL: EVERY DAY),ORAL
     Route: 048
  7. PLAVIX [Concomitant]
  8. SYNTHROID [Concomitant]
  9. METOPROLOL (METOPROLOL) [Concomitant]
  10. VITAMIN B12 [Concomitant]
  11. VITAMIN E [Concomitant]

REACTIONS (2)
  - BLOOD ALKALINE PHOSPHATASE INCREASED [None]
  - PANCREATITIS [None]
